FAERS Safety Report 8396152 (Version 5)
Quarter: 2012Q4

REPORT INFORMATION
  Report Type: 
  Country: GR (occurrence: GR)
  Receive Date: 20120208
  Receipt Date: 20121120
  Transmission Date: 20130627
  Serious: Yes (Death, Other)
  Sender: FDA-Public Use
  Company Number: GR-PFIZER INC-2012031975

PATIENT
  Age: 50 Year
  Sex: Male

DRUGS (17)
  1. CYTARABINE [Suspect]
     Indication: CHRONIC LYMPHOCYTIC LEUKAEMIA
  2. METHYLPREDNISOLONE [Suspect]
     Indication: CHRONIC LYMPHOCYTIC LEUKAEMIA
     Dosage: UNK
  3. CISPLATIN [Suspect]
     Indication: CHRONIC LYMPHOCYTIC LEUKAEMIA
     Dosage: UNK
  4. FLUDARABINE PHOSPHATE [Suspect]
     Indication: CHRONIC LYMPHOCYTIC LEUKAEMIA
     Dosage: UNK
  5. DOXORUBICIN HCL [Suspect]
     Indication: HODGKIN^S DISEASE
  6. ETOPOSIDE [Suspect]
     Indication: HODGKIN^S DISEASE
  7. MESNA [Suspect]
     Indication: HODGKIN^S DISEASE
  8. IFOSFAMIDE [Suspect]
     Indication: HODGKIN^S DISEASE
  9. VINCRISTINE [Suspect]
     Indication: CHRONIC LYMPHOCYTIC LEUKAEMIA
     Dosage: UNK
  10. RITUXIMAB [Suspect]
     Indication: CHRONIC LYMPHOCYTIC LEUKAEMIA
  11. CYCLOPHOSPHAMIDE [Suspect]
     Indication: CHRONIC LYMPHOCYTIC LEUKAEMIA
  12. PREDNISOLONE [Suspect]
     Indication: CHRONIC LYMPHOCYTIC LEUKAEMIA
  13. BLEOMYCIN [Suspect]
     Indication: HODGKIN^S DISEASE
  14. VINBLASTINE [Suspect]
     Indication: HODGKIN^S DISEASE
  15. DACARBAZINE [Suspect]
     Indication: HODGKIN^S DISEASE
  16. NAVELBINE ^ASTA MEDICA^ [Concomitant]
  17. MITOGUAZONE [Concomitant]

REACTIONS (4)
  - Multi-organ failure [Fatal]
  - Toxicity to various agents [Fatal]
  - Epilepsy [Unknown]
  - Toxic encephalopathy [Unknown]
